FAERS Safety Report 9264239 (Version 2)
Quarter: 2014Q2

REPORT INFORMATION
  Report Type: Spontaneous
  Country: US (occurrence: US)
  Receive Date: 20130430
  Receipt Date: 20140430
  Transmission Date: 20141212
  Serious: Yes (Disabling)
  Sender: FDA-Public Use
  Company Number: US-009507513-1304USA016968

PATIENT
  Sex: Male

DRUGS (3)
  1. PROPECIA [Suspect]
     Indication: ALOPECIA
     Dosage: 1 MG, UNK
     Route: 048
     Dates: start: 20060125, end: 20060427
  2. PROPECIA [Suspect]
     Dosage: 1 MG, UNK
     Route: 048
     Dates: start: 20060926, end: 20080228
  3. PROPECIA [Suspect]
     Dosage: 1 MG, UNK
     Route: 048
     Dates: start: 20080412, end: 20090105

REACTIONS (4)
  - Back injury [Unknown]
  - Sexual dysfunction [Not Recovered/Not Resolved]
  - Road traffic accident [Unknown]
  - Erectile dysfunction [Not Recovered/Not Resolved]
